FAERS Safety Report 10177680 (Version 2)
Quarter: 2014Q2

REPORT INFORMATION
  Report Type: Spontaneous
  Country: US (occurrence: US)
  Receive Date: 20140516
  Receipt Date: 20140516
  Transmission Date: 20141212
  Serious: No
  Sender: FDA-Public Use
  Company Number: US-SANOFI-AVENTIS-2012SA061943

PATIENT
  Age: 63 Year
  Sex: Female
  Weight: 58 kg

DRUGS (6)
  1. APIDRA [Suspect]
     Indication: TYPE 1 DIABETES MELLITUS
     Dosage: FREQUENCY: SLIDING SCALE 0-12 UNITS.?DOSE- APIDRA 12 AM:LANTUS 7 PM
     Route: 058
     Dates: start: 201204
  2. APIDRA [Suspect]
     Indication: TYPE 1 DIABETES MELLITUS
     Dosage: FREQUENCY: SLIDING SCALE 0-12 UNITS.?DOSE- APIDRA 12 AM:LANTUS 7 PM
     Route: 058
     Dates: start: 201204
  3. LANTUS [Suspect]
     Route: 065
  4. GLUCAGON [Suspect]
     Dates: start: 20120822
  5. INSULIN DETEMIR [Concomitant]
  6. LEVOTHYROXINE [Concomitant]
     Indication: HYPOTHYROIDISM

REACTIONS (7)
  - Blood glucose increased [Recovered/Resolved]
  - Therapeutic response decreased [Unknown]
  - Blood glucose decreased [Recovered/Resolved]
  - Fall [Recovered/Resolved]
  - Periorbital contusion [Recovered/Resolved]
  - Shock hypoglycaemic [Unknown]
  - Drug ineffective [Unknown]
